FAERS Safety Report 7352784-0 (Version None)
Quarter: 2011Q1

REPORT INFORMATION
  Report Type: 
  Country: None (occurrence: None)
  Receive Date: 20110315
  Receipt Date: 20110309
  Transmission Date: 20110831
  Serious: Yes (Death)
  Sender: FDA-Public Use
  Company Number: JP-ROCHE-675674

PATIENT
  Age: 49 Year
  Sex: Male

DRUGS (11)
  1. TAMIFLU [Suspect]
     Route: 048
     Dates: start: 20091124
  2. RELENZA [Concomitant]
     Route: 055
     Dates: start: 20091207
  3. PREDNISOLONE [Concomitant]
  4. AMANTADINE HCL [Concomitant]
  5. VORICONAZOLE [Concomitant]
  6. TAMIFLU [Suspect]
     Indication: INFLUENZA
     Route: 048
     Dates: start: 20091026
  7. IMMUNE GLOBULIN INTRAVENOUS (HUMAN) [Concomitant]
     Dosage: DRUG: GAMMA-GLOBULIN(HUMAN NORMAL IMMUNOGLOBULIN)
  8. TACROLIMUS HYDRATE [Concomitant]
  9. TAMIFLU [Suspect]
     Route: 048
     Dates: start: 20091214
  10. RELENZA [Concomitant]
     Dosage: DRUG: RELENZA(ZANAMIVIR HYDRATE).  ROUTE: RESPIRATORY (INHALATION).  DOSE FORM: RESPIRATORY TONIC.
     Route: 055
     Dates: start: 20091105
  11. GANCICLOVIR [Concomitant]

REACTIONS (2)
  - PATHOGEN RESISTANCE [None]
  - PNEUMONIA [None]
